FAERS Safety Report 13378370 (Version 1)
Quarter: 2017Q1

REPORT INFORMATION
  Report Type: Spontaneous
  Country: SG (occurrence: SG)
  Receive Date: 20170328
  Receipt Date: 20170328
  Transmission Date: 20170429
  Serious: Yes (Death, Other)
  Sender: FDA-Public Use
  Company Number: SG-BAYER-2017-052196

PATIENT
  Age: 86 Year
  Sex: Male
  Weight: 47 kg

DRUGS (4)
  1. RIFAMPICIN [Interacting]
     Active Substance: RIFAMPIN
     Indication: TUBERCULOSIS
     Dosage: DAILY DOSE 450 MG
  2. ETHAMBUTOL [Interacting]
     Active Substance: ETHAMBUTOL HYDROCHLORIDE
     Dosage: DAILY DOSE 800 MG
  3. ISONIAZID. [Interacting]
     Active Substance: ISONIAZID
     Indication: TUBERCULOSIS
     Dosage: DAILY DOSE 200 MG
  4. MOXIFLOXACIN ORAL [Suspect]
     Active Substance: MOXIFLOXACIN
     Indication: TUBERCULOSIS
     Dosage: DAILY DOSE 400 MG

REACTIONS (5)
  - Pneumonia [Fatal]
  - Delirium [None]
  - Off label use [None]
  - Drug interaction [None]
  - Hypercalcaemia [None]
